FAERS Safety Report 5419686-8 (Version None)
Quarter: 2007Q3

REPORT INFORMATION
  Report Type: 
  Country: None (occurrence: None)
  Receive Date: 20070820
  Receipt Date: 20070809
  Transmission Date: 20080115
  Serious: Yes (Hospitalization)
  Sender: FDA-Public Use
  Company Number: US-AMGEN-KDL198179

PATIENT
  Sex: Female

DRUGS (2)
  1. ENBREL [Suspect]
     Indication: RHEUMATOID ARTHRITIS
     Route: 058
     Dates: start: 20061011
  2. LEFLUNOMIDE [Concomitant]
     Route: 048
     Dates: start: 20050101

REACTIONS (6)
  - DRY SKIN [None]
  - HYPOAESTHESIA [None]
  - INJECTION SITE REACTION [None]
  - INTERVERTEBRAL DISC DISORDER [None]
  - RASH GENERALISED [None]
  - RASH PRURITIC [None]
